FAERS Safety Report 6175384-7 (Version None)
Quarter: 2009Q2

REPORT INFORMATION
  Report Type: 
  Country: None (occurrence: None)
  Receive Date: 20090429
  Receipt Date: 20090414
  Transmission Date: 20091009
  Serious: Yes (Other)
  Sender: FDA-Public Use
  Company Number: 2009PV037809

PATIENT
  Age: 77 Year
  Sex: Female

DRUGS (4)
  1. SYMLIN [Suspect]
     Indication: TYPE 2 DIABETES MELLITUS
     Dosage: SC
     Route: 058
     Dates: start: 20070102, end: 20080101
  2. SYMLIN [Suspect]
     Indication: TYPE 2 DIABETES MELLITUS
     Dosage: 120 MCG;TID; SC
     Route: 058
     Dates: start: 20080101, end: 20080722
  3. SYMLIN [Suspect]
     Indication: TYPE 2 DIABETES MELLITUS
     Dosage: TID; SC
     Route: 058
     Dates: start: 20090101
  4. INSULIN [Concomitant]

REACTIONS (2)
  - PANCREATIC CYST [None]
  - WEIGHT DECREASED [None]
